FAERS Safety Report 8947294 (Version 1)
Quarter: 2012Q4

REPORT INFORMATION
  Report Type: 
  Country: GB (occurrence: GB)
  Receive Date: 20121205
  Receipt Date: 20121205
  Transmission Date: 20130627
  Serious: Yes (Hospitalization)
  Sender: FDA-Public Use
  Company Number: GB-AMGEN-GBRCT2012078002

PATIENT
  Age: 55 Year
  Sex: Female
  Weight: 79.8 kg

DRUGS (3)
  1. PEGFILGRASTIM [Suspect]
     Indication: BREAST CANCER
     Dosage: 6 mg, q2wk
     Route: 042
     Dates: start: 20081010
  2. EPIRUBICIN [Concomitant]
     Indication: BREAST CANCER
     Dosage: 100 mg/m2, q2wk
     Route: 042
     Dates: start: 20081010
  3. CAPECITABINE [Concomitant]
     Indication: BREAST CANCER
     Dosage: 1250 mg/m2, bid
     Route: 048
     Dates: end: 20090227

REACTIONS (3)
  - Pyrexia [Recovered/Resolved]
  - Diarrhoea [Recovered/Resolved]
  - Palmar-plantar erythrodysaesthesia syndrome [Recovered/Resolved]
